FAERS Safety Report 9404008 (Version 2)
Quarter: 2013Q3

REPORT INFORMATION
  Report Type: Spontaneous
  Country: ES (occurrence: ES)
  Receive Date: 20130717
  Receipt Date: 20130718
  Transmission Date: 20140515
  Serious: Yes (Hospitalization, Other)
  Sender: FDA-Public Use
  Company Number: ES-JNJFOC-20130620266

PATIENT
  Age: 46 Year
  Sex: Female

DRUGS (19)
  1. REMICADE [Suspect]
     Indication: CROHN^S DISEASE
     Dosage: 3RD DOSE INDUCTION REGIMEN
     Route: 042
     Dates: start: 201303
  2. REMICADE [Suspect]
     Indication: CROHN^S DISEASE
     Dosage: 4TH INFUSION
     Route: 042
     Dates: start: 20130516
  3. REMICADE [Suspect]
     Indication: UVEITIS
     Dosage: 4TH INFUSION
     Route: 042
     Dates: start: 20130516
  4. REMICADE [Suspect]
     Indication: UVEITIS
     Dosage: 3RD DOSE INDUCTION REGIMEN
     Route: 042
     Dates: start: 201303
  5. REMICADE [Suspect]
     Indication: ERYTHEMA NODOSUM
     Dosage: 4TH INFUSION
     Route: 042
     Dates: start: 20130516
  6. REMICADE [Suspect]
     Indication: ERYTHEMA NODOSUM
     Dosage: 3RD DOSE INDUCTION REGIMEN
     Route: 042
     Dates: start: 201303
  7. REMICADE [Suspect]
     Indication: COLITIS ULCERATIVE
     Dosage: 3RD DOSE INDUCTION REGIMEN
     Route: 042
     Dates: start: 201303
  8. REMICADE [Suspect]
     Indication: COLITIS ULCERATIVE
     Dosage: 4TH INFUSION
     Route: 042
     Dates: start: 20130516
  9. CLAVERSAL [Suspect]
     Indication: CROHN^S DISEASE
     Route: 065
  10. ALPRAZOLAM [Concomitant]
     Route: 065
  11. OMEPRAZOLE [Concomitant]
     Route: 065
  12. TARDYFERON [Concomitant]
     Route: 065
  13. EUCREAS [Concomitant]
     Route: 065
  14. HIDROFEROL [Concomitant]
     Route: 065
  15. VITAMIN D [Concomitant]
     Route: 065
  16. CALCIUM SANDOZ [Concomitant]
     Route: 065
  17. NOLOTIL [Concomitant]
     Route: 065
  18. PARACETAMOL [Concomitant]
     Route: 065
  19. DACORTIN [Concomitant]
     Route: 065

REACTIONS (9)
  - Conjunctivitis viral [Recovering/Resolving]
  - Interstitial lung disease [Recovered/Resolved]
  - Respiratory failure [Unknown]
  - Vulvovaginal candidiasis [Unknown]
  - Tuberculosis [Unknown]
  - Platelet count increased [Unknown]
  - Pneumothorax [Recovered/Resolved]
  - Inflammatory bowel disease [Unknown]
  - Off label use [Unknown]
